FAERS Safety Report 5560301-0 (Version None)
Quarter: 2007Q4

REPORT INFORMATION
  Report Type: 
  Country: None (occurrence: None)
  Receive Date: 20071214
  Receipt Date: 20071101
  Transmission Date: 20080405
  Serious: No
  Sender: FDA-Public Use
  Company Number: US-ABBOTT-07P-163-0423372-00

PATIENT
  Sex: Female
  Weight: 56.75 kg

DRUGS (6)
  1. HUMIRA [Suspect]
     Indication: CROHN'S DISEASE
     Route: 058
     Dates: start: 20071003, end: 20071003
  2. HUMIRA [Suspect]
     Route: 058
  3. HUMIRA [Suspect]
     Route: 058
  4. PANTOPRAZOLE SODIUM [Concomitant]
     Indication: DRUG USE FOR UNKNOWN INDICATION
  5. AZATHIOPRINE [Concomitant]
     Indication: DRUG USE FOR UNKNOWN INDICATION
  6. BIRTH CONTROL PILLS [Concomitant]
     Indication: DRUG USE FOR UNKNOWN INDICATION

REACTIONS (7)
  - DIZZINESS [None]
  - FEELING HOT [None]
  - MALAISE [None]
  - NASAL CONGESTION [None]
  - NASOPHARYNGITIS [None]
  - PAINFUL RESPIRATION [None]
  - PRODUCTIVE COUGH [None]
